FAERS Safety Report 5024590-3 (Version None)
Quarter: 2006Q2

REPORT INFORMATION
  Report Type: 
  Country: None (occurrence: None)
  Receive Date: 20060426
  Receipt Date: 20060111
  Transmission Date: 20061013
  Serious: Yes (Other)
  Sender: FDA-Public Use
  Company Number: 2006001135

PATIENT
  Age: 56 Year
  Sex: Female
  Weight: 68.0396 kg

DRUGS (9)
  1. LYRICA [Suspect]
     Indication: POST HERPETIC NEURALGIA
     Dosage: 100 MG (50 MG,2 IN 1 D),ORAL
     Route: 048
     Dates: start: 20051201, end: 20051201
  2. NEURONTIN [Concomitant]
  3. CYMBALTA [Concomitant]
  4. CORGARD [Concomitant]
  5. PREMARIN [Concomitant]
  6. CLARINEX [Concomitant]
  7. MONTELUKAST (MONTELUKAST) [Concomitant]
  8. MIRTAZAPINE [Concomitant]
  9. PROAMATINE [Concomitant]

REACTIONS (3)
  - DRUG INEFFECTIVE [None]
  - FEELING ABNORMAL [None]
  - INSOMNIA [None]
